FAERS Safety Report 14647386 (Version 1)
Quarter: 2018Q1

REPORT INFORMATION
  Report Type: Spontaneous
  Country: US (occurrence: US)
  Receive Date: 20180316
  Receipt Date: 20180316
  Transmission Date: 20180509
  Serious: No
  Sender: FDA-Public Use
  Company Number: US-PFIZER INC-2018108441

PATIENT
  Age: 52 Year
  Sex: Female
  Weight: 69.84 kg

DRUGS (18)
  1. ASPIRIN. [Concomitant]
     Active Substance: ASPIRIN
     Indication: RENAL TRANSPLANT
  2. BACTRIM [Concomitant]
     Active Substance: SULFAMETHOXAZOLE\TRIMETHOPRIM
     Indication: PANCREAS TRANSPLANT
     Dosage: 400 MG, DAILY
     Route: 048
     Dates: start: 20030527
  3. LOSARTAN. [Concomitant]
     Active Substance: LOSARTAN
     Indication: BLOOD PRESSURE ABNORMAL
     Dosage: 25 MG, DAILY
     Route: 048
  4. MAGNESIUM MALATE [Concomitant]
     Indication: RENAL TRANSPLANT
  5. OMEGA 3 [Concomitant]
     Active Substance: OMEGA-3 FATTY ACIDS
     Indication: PANCREAS TRANSPLANT
     Dosage: 1000 MG, DAILY
     Route: 048
  6. ZOLPIDEM [Concomitant]
     Active Substance: ZOLPIDEM\ZOLPIDEM TARTRATE
     Indication: SLEEP DISORDER
     Dosage: 5 MG, AS NEEDED
     Route: 048
  7. RAPAMUNE [Suspect]
     Active Substance: SIROLIMUS
     Indication: PANCREAS TRANSPLANT
  8. ASPIRIN. [Concomitant]
     Active Substance: ASPIRIN
     Indication: PANCREAS TRANSPLANT
     Dosage: 325 MG, DAILY
     Route: 048
     Dates: start: 20030527
  9. OMEGA 3 [Concomitant]
     Active Substance: OMEGA-3 FATTY ACIDS
     Indication: RENAL TRANSPLANT
  10. MAGNESIUM MALATE [Concomitant]
     Indication: PANCREAS TRANSPLANT
     Dosage: 1000 MG, DAILY
     Route: 048
  11. PROGRAF [Concomitant]
     Active Substance: TACROLIMUS\TACROLIMUS ANHYDROUS
     Indication: RENAL TRANSPLANT
     Dosage: UNK
  12. TORSEMIDE. [Concomitant]
     Active Substance: TORSEMIDE
     Indication: RENAL TRANSPLANT
  13. RAPAMUNE [Suspect]
     Active Substance: SIROLIMUS
     Indication: RENAL TRANSPLANT
     Dosage: 2 MG, 2X/DAY  (2 TABLETS TAKEN)
     Route: 048
     Dates: start: 20030527
  14. BACTRIM [Concomitant]
     Active Substance: SULFAMETHOXAZOLE\TRIMETHOPRIM
     Indication: RENAL TRANSPLANT
  15. TORSEMIDE. [Concomitant]
     Active Substance: TORSEMIDE
     Indication: PANCREAS TRANSPLANT
     Dosage: UNK UNK, DAILY (5MG TABLETS-1 AND A HALF TABLETS TAKEN BY MOUTH DAILY)
     Route: 048
     Dates: start: 20030527
  16. KLOR-CON [Concomitant]
     Active Substance: POTASSIUM CHLORIDE
     Indication: PANCREAS TRANSPLANT
     Dosage: 10 MEQ, DAILY
     Route: 048
  17. KLOR-CON [Concomitant]
     Active Substance: POTASSIUM CHLORIDE
     Indication: RENAL TRANSPLANT
  18. PROGRAF [Concomitant]
     Active Substance: TACROLIMUS\TACROLIMUS ANHYDROUS
     Indication: PANCREAS TRANSPLANT

REACTIONS (5)
  - Asthenia [Not Recovered/Not Resolved]
  - Memory impairment [Not Recovered/Not Resolved]
  - Muscle twitching [Unknown]
  - Fatigue [Unknown]
  - Somnolence [Unknown]

NARRATIVE: CASE EVENT DATE: 20180308
